FAERS Safety Report 21550943 (Version 4)
Quarter: 2022Q4

REPORT INFORMATION
  Report Type: Report from Study
  Country: US (occurrence: US)
  Receive Date: 20221103
  Receipt Date: 20221227
  Transmission Date: 20230113
  Serious: Yes (Other)
  Sender: FDA-Public Use
  Company Number: US-XERIS PHARMACEUTICALS-2022XER00375

PATIENT
  Sex: Female
  Weight: 104.31 kg

DRUGS (6)
  1. RECORLEV [Suspect]
     Active Substance: LEVOKETOCONAZOLE
     Indication: Cushing^s syndrome
     Dosage: ONE TABLET (150 MG), 2X/DAY
     Route: 048
     Dates: start: 20221014
  2. DULOXETINE [Concomitant]
     Active Substance: DULOXETINE
  3. METOPROLOL [Concomitant]
     Active Substance: METOPROLOL
  4. VERAPAMIL [Concomitant]
     Active Substance: VERAPAMIL HYDROCHLORIDE
  5. VITAMIN D3 [Concomitant]
     Active Substance: CHOLECALCIFEROL
  6. VITAMIN C [Concomitant]
     Active Substance: ASCORBIC ACID

REACTIONS (8)
  - Nausea [Recovering/Resolving]
  - Liver disorder [Unknown]
  - Fatigue [Unknown]
  - Feeling hot [Unknown]
  - Acne [Unknown]
  - Pain [Unknown]
  - Headache [Not Recovered/Not Resolved]
  - Flushing [Unknown]

NARRATIVE: CASE EVENT DATE: 20220101
